FAERS Safety Report 19818054 (Version 1)
Quarter: 2021Q3

REPORT INFORMATION
  Report Type: Spontaneous
  Country: CN (occurrence: CN)
  Receive Date: 20210911
  Receipt Date: 20210911
  Transmission Date: 20211014
  Serious: Yes (Other)
  Sender: FDA-Public Use
  Company Number: CN-ROCHE-2904783

PATIENT
  Age: 40 Year
  Sex: Male

DRUGS (2)
  1. AVASTIN [Suspect]
     Active Substance: BEVACIZUMAB
     Indication: HEPATIC CANCER
     Route: 065
     Dates: start: 20210722
  2. TECENTRIQ [Suspect]
     Active Substance: ATEZOLIZUMAB
     Indication: HEPATIC CANCER
     Route: 065
     Dates: start: 20210722

REACTIONS (6)
  - Ascites [Unknown]
  - Decreased appetite [Unknown]
  - Pyrexia [Unknown]
  - Tachycardia [Unknown]
  - Hypertension [Unknown]
  - Myalgia [Unknown]

NARRATIVE: CASE EVENT DATE: 20210902
